FAERS Safety Report 5367645-6 (Version None)
Quarter: 2007Q2

REPORT INFORMATION
  Report Type: 
  Country: None (occurrence: None)
  Receive Date: 20070622
  Receipt Date: 20070124
  Transmission Date: 20071010
  Serious: No
  Sender: FDA-Public Use
  Company Number: US-ASTRAZENECA-2007UW01490

PATIENT
  Age: 84 Year
  Sex: Female

DRUGS (3)
  1. PULMICORT RESPULES [Suspect]
     Indication: CHRONIC OBSTRUCTIVE PULMONARY DISEASE
     Route: 055
  2. XOPENEX [Concomitant]
  3. BUSPAR [Concomitant]
     Indication: NERVOUSNESS

REACTIONS (3)
  - FATIGUE [None]
  - FEELING ABNORMAL [None]
  - TREMOR [None]
